FAERS Safety Report 8623183-6 (Version None)
Quarter: 2012Q3

REPORT INFORMATION
  Report Type: 
  Country: None (occurrence: None)
  Receive Date: 20120827
  Receipt Date: 20120822
  Transmission Date: 20120928
  Serious: Yes (Other)
  Sender: FDA-Public Use
  Company Number: PHHY2012CA067962

PATIENT
  Sex: Male

DRUGS (4)
  1. ZOLEDRONOC ACID [Suspect]
     Route: 042
     Dates: start: 20100506
  2. ZOLEDRONOC ACID [Suspect]
     Indication: OSTEOPOROSIS
     Route: 042
     Dates: start: 20090506
  3. ZOLEDRONOC ACID [Suspect]
     Route: 042
     Dates: start: 20120816
  4. ZOLEDRONOC ACID [Suspect]
     Route: 042
     Dates: start: 20110518

REACTIONS (5)
  - PARAESTHESIA ORAL [None]
  - RETINAL DETACHMENT [None]
  - FATIGUE [None]
  - PARAESTHESIA [None]
  - EYE DISORDER [None]
